FAERS Safety Report 4496269-8 (Version None)
Quarter: 2004Q3

REPORT INFORMATION
  Report Type: 
  Country: None (occurrence: None)
  Receive Date: 20040921
  Receipt Date: 20040317
  Transmission Date: 20050211
  Serious: Yes (Hospitalization, Other)
  Sender: FDA-Public Use
  Company Number: 163-20785-04030499

PATIENT
  Age: 57 Year
  Sex: Male
  Weight: 77 kg

DRUGS (16)
  1. THALOMID [Suspect]
     Indication: MULTIPLE MYELOMA
     Dosage: 50 MG, QD, ORAL
     Route: 048
     Dates: start: 20001020, end: 20020807
  2. THALOMID [Suspect]
     Indication: MULTIPLE MYELOMA
     Dosage: 50 MG, QD, ORAL
     Route: 048
     Dates: start: 20020808, end: 20030616
  3. THALOMID [Suspect]
     Indication: MULTIPLE MYELOMA
     Dosage: 50 MG, QD, ORAL
     Route: 048
     Dates: start: 20030617, end: 20040107
  4. DEXAMETHASONE [Suspect]
     Indication: MULTIPLE MYELOMA
     Dosage: ORAL
     Route: 048
     Dates: start: 20001020, end: 20020625
  5. THALOMID [Suspect]
     Indication: MULTIPLE MYELOMA
     Dates: start: 20040107
  6. FLAGYL [Concomitant]
  7. PAXIL [Concomitant]
  8. CELEXA [Concomitant]
  9. LEXAPRO [Concomitant]
  10. MAGNESIUM OXIDE (MAGNESIUM OXIDE) [Concomitant]
  11. PREVACID [Concomitant]
  12. XANAX [Concomitant]
  13. PROCRIT [Concomitant]
  14. AREDIA [Concomitant]
  15. ATIVAN [Concomitant]
  16. CALCIUM (CALCIUM) [Concomitant]

REACTIONS (15)
  - BACTERAEMIA [None]
  - BLOOD CREATININE INCREASED [None]
  - BLOOD PHOSPHORUS INCREASED [None]
  - BLOOD URIC ACID INCREASED [None]
  - CELLULITIS [None]
  - DEEP VEIN THROMBOSIS [None]
  - DISEASE PROGRESSION [None]
  - FATIGUE [None]
  - MENTAL STATUS CHANGES [None]
  - OSTEOMYELITIS [None]
  - PULMONARY OEDEMA [None]
  - RENAL FAILURE [None]
  - SUPRAVENTRICULAR TACHYCARDIA [None]
  - THROMBOCYTOPENIA [None]
  - TUMOUR LYSIS SYNDROME [None]
